FAERS Safety Report 20957900 (Version 1)
Quarter: 2022Q2

REPORT INFORMATION
  Report Type: Report from Study
  Country: US (occurrence: US)
  Receive Date: 20220614
  Receipt Date: 20220614
  Transmission Date: 20220721
  Serious: Yes (Other)
  Sender: FDA-Public Use
  Company Number: US-TAKEDA-US201728989

PATIENT
  Sex: Female

DRUGS (3)
  1. HUMAN IMMUNOGLOBULIN G [Suspect]
     Active Substance: HUMAN IMMUNOGLOBULIN G
     Indication: Hypogammaglobulinaemia
     Dosage: 20 GRAM, 1/WEEK
     Route: 042
  2. HUMAN IMMUNOGLOBULIN G [Suspect]
     Active Substance: HUMAN IMMUNOGLOBULIN G
     Indication: Primary immunodeficiency syndrome
  3. LAMISIL [Suspect]
     Active Substance: TERBINAFINE HYDROCHLORIDE
     Indication: Product used for unknown indication
     Route: 065

REACTIONS (10)
  - Lyme disease [Not Recovered/Not Resolved]
  - Fungal infection [Unknown]
  - Infection [Unknown]
  - Post-traumatic stress disorder [Unknown]
  - Nonspecific reaction [Unknown]
  - Treatment noncompliance [Not Recovered/Not Resolved]
  - Road traffic accident [Unknown]
  - Insurance issue [Not Recovered/Not Resolved]
  - Inappropriate schedule of product administration [Unknown]
  - Therapy interrupted [Unknown]
